FAERS Safety Report 14371868 (Version 2)
Quarter: 2018Q1

REPORT INFORMATION
  Report Type: Spontaneous
  Country: LS (occurrence: LS)
  Receive Date: 20180110
  Receipt Date: 20180119
  Transmission Date: 20180509
  Serious: Yes (Death)
  Sender: FDA-Public Use
  Company Number: LS-JNJFOC-20180105578

PATIENT
  Sex: Female
  Weight: 54 kg

DRUGS (10)
  1. SIRTURO [Suspect]
     Active Substance: BEDAQUILINE FUMARATE
     Indication: TUBERCULOSIS
     Route: 048
     Dates: start: 20170502, end: 20171224
  2. PROTHIONAMIDE [Suspect]
     Active Substance: PROTIONAMIDE
     Indication: TUBERCULOSIS
     Route: 065
     Dates: start: 20170502, end: 20171224
  3. NEVIRAPINE. [Concomitant]
     Active Substance: NEVIRAPINE
     Indication: HIV INFECTION
     Dosage: DAILY DOSE 40 (UNITS UNSPECIFIED)
     Route: 065
     Dates: start: 20170502, end: 20171224
  4. ABACAVIR. [Concomitant]
     Active Substance: ABACAVIR
     Indication: HIV INFECTION
     Dosage: DAILY DOSE 600 (UNITS UNSPECIFIED)
     Route: 065
     Dates: start: 20080601, end: 20171224
  5. THYROXINE [Concomitant]
     Active Substance: LEVOTHYROXINE
     Indication: HYPOTHYROIDISM
     Route: 065
     Dates: start: 20170502, end: 20171224
  6. PYRAZINAMIDE. [Suspect]
     Active Substance: PYRAZINAMIDE
     Indication: TUBERCULOSIS
     Route: 065
     Dates: start: 20170502, end: 20171224
  7. LINEZOLID. [Suspect]
     Active Substance: LINEZOLID
     Indication: TUBERCULOSIS
     Dosage: 300 (UNITS UNSPECIFIED)
     Route: 065
     Dates: start: 20170502, end: 20171224
  8. METOCLOPRAMIDE. [Concomitant]
     Active Substance: METOCLOPRAMIDE
     Indication: NAUSEA
     Dosage: DAILY DOSE 20 (UNITS UNSPECIFIED)
     Route: 065
     Dates: start: 20080502, end: 20171224
  9. CLOFAZIMINE [Suspect]
     Active Substance: CLOFAZIMINE
     Indication: TUBERCULOSIS
     Route: 065
     Dates: start: 20170502, end: 20171224
  10. LAMIVUDINE. [Concomitant]
     Active Substance: LAMIVUDINE
     Indication: HIV INFECTION
     Dosage: DAILY DOSE 300 (UNITS UNSPECIFIED)
     Route: 065
     Dates: start: 20080601, end: 20171224

REACTIONS (1)
  - Respiratory failure [Fatal]
